FAERS Safety Report 8805891 (Version 2)
Quarter: 2012Q4

REPORT INFORMATION
  Report Type: Spontaneous
  Country: US (occurrence: None)
  Receive Date: 20120918
  Receipt Date: 20120925
  Transmission Date: 20130627
  Serious: Yes (Other)
  Sender: FDA-Public Use
  Company Number: DSA_58291_2012

PATIENT
  Sex: Male
  Weight: 52.62 kg

DRUGS (6)
  1. WELLBUTRIN XL [Suspect]
     Indication: DEPRESSION
     Route: 048
     Dates: start: 2008, end: 2010
  2. WELLBUTRIN XL [Suspect]
     Indication: DEPRESSION
     Route: 048
     Dates: start: 2011, end: 2012
  3. WELLBUTRIN XL [Suspect]
     Indication: DEPRESSION
     Dosage: (150 mg + 300 mg)
     Route: 048
     Dates: start: 2012
  4. SEROQUEL [Concomitant]
  5. LITHIUM [Concomitant]
  6. VYVANSE [Concomitant]

REACTIONS (1)
  - Tooth resorption [None]
